FAERS Safety Report 7577842-7 (Version None)
Quarter: 2011Q2

REPORT INFORMATION
  Report Type: 
  Country: None (occurrence: None)
  Receive Date: 20110628
  Receipt Date: 20110615
  Transmission Date: 20111010
  Serious: Yes (Other)
  Sender: FDA-Public Use
  Company Number: PHHY2011DE43791

PATIENT
  Sex: Female
  Weight: 55 kg

DRUGS (2)
  1. ZOMETA [Suspect]
     Dosage: 4MG/5ML, ONCE PER MONTH
     Route: 042
     Dates: start: 20081101
  2. ZOMETA [Suspect]
     Dosage: 4MG/5ML, ONCE PER MONTH
     Route: 042
     Dates: start: 20100101

REACTIONS (2)
  - BONE DISORDER [None]
  - ORAL TORUS [None]
